FAERS Safety Report 15535745 (Version 4)
Quarter: 2019Q1

REPORT INFORMATION
  Report Type: Spontaneous
  Country: US (occurrence: US)
  Receive Date: 20181022
  Receipt Date: 20190111
  Transmission Date: 20190417
  Serious: No
  Sender: FDA-Public Use
  Company Number: US-PFIZER INC-2018424029

PATIENT
  Age: 59 Year
  Sex: Female

DRUGS (17)
  1. CELECOXIB. [Suspect]
     Active Substance: CELECOXIB
     Dosage: UNK
  2. ACETAMINOPHEN. [Suspect]
     Active Substance: ACETAMINOPHEN
     Dosage: UNK
  3. SULFAMETHOXAZOLE [Suspect]
     Active Substance: SULFAMETHOXAZOLE
     Dosage: UNK
  4. TELITHROMYCIN [Suspect]
     Active Substance: TELITHROMYCIN
     Dosage: UNK
  5. OMNICEF [Suspect]
     Active Substance: CEFDINIR
     Dosage: UNK
  6. CEFDINIR. [Suspect]
     Active Substance: CEFDINIR
     Dosage: UNK
  7. HYDROCODONE [Suspect]
     Active Substance: HYDROCODONE
     Dosage: UNK
  8. PROCHLORPERAZINE. [Suspect]
     Active Substance: PROCHLORPERAZINE
     Dosage: UNK
  9. TRAMADOL. [Suspect]
     Active Substance: TRAMADOL
     Dosage: UNK
  10. ULTRAM [Suspect]
     Active Substance: TRAMADOL HYDROCHLORIDE
  11. MOXIFLOXACIN. [Suspect]
     Active Substance: MOXIFLOXACIN
     Dosage: UNK
  12. CIPROFLOXACIN. [Suspect]
     Active Substance: CIPROFLOXACIN
     Dosage: UNK
  13. ESTRADIOL. [Suspect]
     Active Substance: ESTRADIOL
     Dosage: UNK
  14. TRAMADOL AND ACETAMINOPHEN [Suspect]
     Active Substance: ACETAMINOPHEN\TRAMADOL HYDROCHLORIDE
     Dosage: UNK
  15. OXYCODONE [Suspect]
     Active Substance: OXYCODONE
     Dosage: UNK
  16. OXYCODONE AND ACETAMINOPHEN [Suspect]
     Active Substance: ACETAMINOPHEN\OXYCODONE HYDROCHLORIDE
     Dosage: UNK
  17. TRIMETHOPRIM. [Suspect]
     Active Substance: TRIMETHOPRIM
     Dosage: UNK

REACTIONS (1)
  - Drug hypersensitivity [Unknown]
